FAERS Safety Report 10416947 (Version 3)
Quarter: 2015Q1

REPORT INFORMATION
  Report Type: Spontaneous
  Country: US (occurrence: None)
  Receive Date: 20140826
  Receipt Date: 20150107
  Transmission Date: 20150720
  Serious: Yes (Life-Threatening, Hospitalization, Other)
  Sender: FDA-Public Use
  Company Number: 2493621

PATIENT
  Age: 67 Year
  Sex: Male
  Weight: 84.37 kg

DRUGS (13)
  1. LISINOPRIL. [Concomitant]
     Active Substance: LISINOPRIL
  2. GLIPIZIDE. [Concomitant]
     Active Substance: GLIPIZIDE
  3. SENNA [Concomitant]
     Active Substance: SENNA LEAF\SENNOSIDES\SENNOSIDES A AND B
  4. METOPROLOL [Concomitant]
     Active Substance: METOPROLOL
  5. OXYCODONE [Concomitant]
     Active Substance: OXYCODONE
  6. INVESTIGATIONAL DRUG [Concomitant]
     Active Substance: INVESTIGATIONAL PRODUCT
  7. DOCETAXEL. [Suspect]
     Active Substance: DOCETAXEL
     Indication: SOFT TISSUE SARCOMA
     Dosage: CYCLICAL
     Route: 041
     Dates: start: 20140219, end: 20140219
  8. HYDROMORPHONE [Concomitant]
     Active Substance: HYDROMORPHONE
  9. GEMCITABINE [Suspect]
     Active Substance: GEMCITABINE\GEMCITABINE HYDROCHLORIDE
     Indication: SOFT TISSUE DISORDER
     Dosage: 1935 MG MILLIGRAM, CYCLICAL, INTRAVENOUS DRIP
     Route: 041
     Dates: start: 20140212, end: 20140219
  10. SERTRALINE [Concomitant]
     Active Substance: SERTRALINE HYDROCHLORIDE
  11. ALPRAZOLAM. [Concomitant]
     Active Substance: ALPRAZOLAM
  12. ROSUVASTATIN [Concomitant]
     Active Substance: ROSUVASTATIN
  13. LANSOPRAZOLE. [Concomitant]
     Active Substance: LANSOPRAZOLE

REACTIONS (16)
  - Subclavian vein thrombosis [None]
  - Blood calcium decreased [None]
  - Metastases to liver [None]
  - Mobility decreased [None]
  - Blood alkaline phosphatase increased [None]
  - Protein total decreased [None]
  - Blood glucose increased [None]
  - Blood albumin decreased [None]
  - Haemoglobin decreased [None]
  - Deep vein thrombosis [None]
  - Blood pressure systolic increased [None]
  - Alanine aminotransferase [None]
  - Pneumonitis [None]
  - Jugular vein thrombosis [None]
  - Haematocrit decreased [None]
  - Red blood cell count decreased [None]

NARRATIVE: CASE EVENT DATE: 20140326
